FAERS Safety Report 4900780-2 (Version None)
Quarter: 2006Q1

REPORT INFORMATION
  Report Type: 
  Country: None (occurrence: None)
  Receive Date: 20060201
  Receipt Date: 20060123
  Transmission Date: 20060701
  Serious: Yes (Death, Hospitalization)
  Sender: FDA-Public Use
  Company Number: 2006EU000165

PATIENT
  Age: 56 Year
  Sex: Male

DRUGS (7)
  1. PROGRAF [Suspect]
     Indication: STEM CELL TRANSPLANT
  2. CORTICOSTEROIDS [Concomitant]
  3. AZATHIOPRINE [Concomitant]
  4. CYCLOSPORINE [Concomitant]
  5. MYCOPHENOLATE MOFETIL (MYCOPHENOLATE MOFETIL) [Concomitant]
  6. METHOTREXATE [Concomitant]
  7. THALIDOMIDE (THALIDOMIDE [Concomitant]

REACTIONS (14)
  - ALANINE AMINOTRANSFERASE INCREASED [None]
  - BLOOD ALKALINE PHOSPHATASE INCREASED [None]
  - DRUG INEFFECTIVE [None]
  - GAMMA-GLUTAMYLTRANSFERASE INCREASED [None]
  - GRAFT VERSUS HOST DISEASE [None]
  - HAEMOGLOBIN DECREASED [None]
  - HAEMOSIDEROSIS [None]
  - MUSCLE ATROPHY [None]
  - MYOPATHY [None]
  - PARAPARESIS [None]
  - PNEUMONIA ASPIRATION [None]
  - POLYNEUROPATHY [None]
  - SCLERODERMA [None]
  - THERAPY NON-RESPONDER [None]
